FAERS Safety Report 10142958 (Version 1)
Quarter: 2014Q2

REPORT INFORMATION
  Report Type: Spontaneous
  Country: TR (occurrence: TR)
  Receive Date: 20140430
  Receipt Date: 20140430
  Transmission Date: 20141212
  Serious: Yes (Hospitalization)
  Sender: FDA-Public Use
  Company Number: TR-JNJFOC-20140415745

PATIENT
  Age: 66 Year
  Sex: 0

DRUGS (4)
  1. TOPIRAMATE [Suspect]
     Indication: MIGRAINE PROPHYLAXIS
     Route: 048
  2. PROPRANOLOL [Concomitant]
     Indication: MIGRAINE PROPHYLAXIS
     Route: 065
  3. VALPROATE NOS [Concomitant]
     Indication: MIGRAINE PROPHYLAXIS
     Route: 065
  4. AMITRIPTYLIN [Concomitant]
     Indication: MIGRAINE PROPHYLAXIS
     Route: 065

REACTIONS (2)
  - Cognitive disorder [Recovered/Resolved]
  - Confusional state [Recovered/Resolved]
